FAERS Safety Report 8266220-3 (Version None)
Quarter: 2012Q2

REPORT INFORMATION
  Report Type: 
  Country: None (occurrence: None)
  Receive Date: 20120406
  Receipt Date: 20120327
  Transmission Date: 20120825
  Serious: Yes (Hospitalization)
  Sender: FDA-Public Use
  Company Number: GR-ROCHE-1044616

PATIENT
  Sex: Female
  Weight: 70 kg

DRUGS (9)
  1. AVASTIN [Suspect]
     Indication: RENAL CELL CARCINOMA
     Route: 042
     Dates: start: 20111124, end: 20120210
  2. MOXONIDINE [Concomitant]
     Route: 048
     Dates: start: 20050615
  3. ZOLEDRONIC ACID [Suspect]
     Indication: METASTASES TO BONE
     Route: 042
     Dates: start: 20110712
  4. FLAGYL [Concomitant]
     Route: 048
     Dates: start: 20120216, end: 20120224
  5. AMLODIPINE [Concomitant]
     Route: 048
     Dates: start: 20070615
  6. ATORVASTATIN [Concomitant]
     Route: 048
     Dates: start: 20100615
  7. AMOXYLIN [Concomitant]
     Route: 048
     Dates: start: 20120216, end: 20120224
  8. TEMSIROLIMUS [Suspect]
     Indication: RENAL CANCER METASTATIC
     Route: 042
     Dates: start: 20111124, end: 20120210
  9. VALSARTAN [Concomitant]
     Route: 048
     Dates: start: 20070615

REACTIONS (1)
  - OSTEONECROSIS [None]
